FAERS Safety Report 6094368-0 (Version None)
Quarter: 2009Q1

REPORT INFORMATION
  Report Type: 
  Country: None (occurrence: None)
  Receive Date: 20090224
  Receipt Date: 20090211
  Transmission Date: 20090719
  Serious: Yes (Other)
  Sender: FDA-Public Use
  Company Number: GB-DEXPHARM-20090140

PATIENT
  Age: 64 Year
  Sex: Female

DRUGS (7)
  1. OMEPRAZOLE [Suspect]
     Indication: GASTROINTESTINAL DISORDER
     Dates: start: 20081230
  2. ALLOPURINOL [Suspect]
     Indication: MULTIPLE MYELOMA
     Dosage: 1 IN 1 DAY
     Dates: start: 20081206, end: 20090101
  3. THALIDOMIDE [Suspect]
     Indication: MULTIPLE MYELOMA
     Dosage: 50 MG MILLIGRAM(S), ORAL 1 IN 1 DAY
     Route: 048
     Dates: start: 20081210, end: 20090111
  4. LANSOPRAZOLE [Suspect]
     Indication: GASTROINTESTINAL DISORDER
     Dosage: 1 IN 1 DAY
     Dates: start: 20081206, end: 20090108
  5. CEPHALEXIN [Concomitant]
  6. CYCLOPHOSPHAMIDE  DEXAMETHASONE [Concomitant]
  7. DEXAMETHASONE [Concomitant]

REACTIONS (2)
  - RASH MORBILLIFORM [None]
  - TREATMENT NONCOMPLIANCE [None]
